FAERS Safety Report 15456797 (Version 1)
Quarter: 2018Q4

REPORT INFORMATION
  Report Type: Report from Study
  Country: CA (occurrence: CA)
  Receive Date: 20181002
  Receipt Date: 20181002
  Transmission Date: 20190204
  Serious: Yes (Other)
  Sender: FDA-Public Use
  Company Number: CA-GLAXOSMITHKLINE-CA2018GSK156812

PATIENT
  Sex: Male

DRUGS (3)
  1. SALBUTAMOL SULPHATE [Suspect]
     Active Substance: ALBUTEROL SULFATE
     Indication: ASTHMA
     Dosage: UNK
  2. PREDNISONE. [Concomitant]
     Active Substance: PREDNISONE
     Indication: PRODUCT USED FOR UNKNOWN INDICATION
     Dosage: 10 MG, QD
  3. PREDNISONE. [Concomitant]
     Active Substance: PREDNISONE
     Dosage: 5 MG, QD

REACTIONS (13)
  - Haemoptysis [Unknown]
  - Wheezing [Unknown]
  - Rhonchi [Unknown]
  - Asthma [Unknown]
  - Drug ineffective [Unknown]
  - Malaise [Unknown]
  - Eosinophil count increased [Unknown]
  - Productive cough [Unknown]
  - Decreased appetite [Unknown]
  - Dyspnoea [Unknown]
  - Nasal congestion [Unknown]
  - Bronchial obstruction [Unknown]
  - Cough [Unknown]
